FAERS Safety Report 18985510 (Version 1)
Quarter: 2021Q1

REPORT INFORMATION
  Report Type: Report from Study
  Country: US (occurrence: US)
  Receive Date: 20210309
  Receipt Date: 20210309
  Transmission Date: 20210420
  Serious: Yes (Hospitalization)
  Sender: FDA-Public Use
  Company Number: US-SECURA BIO, INC.-2021US001860

PATIENT
  Age: 57 Year
  Sex: Female
  Weight: 99.3 kg

DRUGS (2)
  1. IPI?145 [Suspect]
     Active Substance: DUVELISIB
     Indication: T-CELL LYMPHOMA REFRACTORY
     Dosage: 75 MG
     Route: 048
     Dates: start: 20200916
  2. IPI?145 [Suspect]
     Active Substance: DUVELISIB
     Dosage: 25 MG
     Route: 048

REACTIONS (5)
  - Vomiting [Not Recovered/Not Resolved]
  - Diarrhoea [Not Recovered/Not Resolved]
  - Pyrexia [Not Recovered/Not Resolved]
  - Dehydration [Not Recovered/Not Resolved]
  - Nausea [Not Recovered/Not Resolved]

NARRATIVE: CASE EVENT DATE: 20210302
